FAERS Safety Report 9137287 (Version 1)
Quarter: 2013Q1

REPORT INFORMATION
  Report Type: Spontaneous
  Country: US (occurrence: US)
  Receive Date: 20130219
  Receipt Date: 20130219
  Transmission Date: 20140127
  Serious: No
  Sender: FDA-Public Use
  Company Number: US-BRISTOL-MYERS SQUIBB COMPANY-16495632

PATIENT
  Age: 22 Year
  Sex: Male
  Weight: 102 kg

DRUGS (1)
  1. ORENCIA FOR INJ [Suspect]

REACTIONS (2)
  - Pain [Unknown]
  - Joint swelling [Unknown]
